FAERS Safety Report 9130440 (Version 1)
Quarter: 2013Q1

REPORT INFORMATION
  Report Type: Spontaneous
  Country: FR (occurrence: FR)
  Receive Date: 20130301
  Receipt Date: 20130301
  Transmission Date: 20140127
  Serious: Yes (Hospitalization)
  Sender: FDA-Public Use
  Company Number: FR-AMGEN-FRASP2013012178

PATIENT
  Age: 64 Year
  Sex: Female

DRUGS (1)
  1. NPLATE [Suspect]
     Indication: AUTOIMMUNE THROMBOCYTOPENIA
     Dosage: UNK
     Route: 058
     Dates: start: 2010

REACTIONS (1)
  - Transient ischaemic attack [Recovering/Resolving]
